FAERS Safety Report 17229821 (Version 1)
Quarter: 2020Q1

REPORT INFORMATION
  Report Type: Spontaneous
  Country: US (occurrence: US)
  Receive Date: 20200103
  Receipt Date: 20200103
  Transmission Date: 20200409
  Serious: No
  Sender: FDA-Public Use
  Company Number: US-PERRIGO-19US001725

PATIENT
  Age: 88 Year
  Sex: Male
  Weight: 58.96 kg

DRUGS (1)
  1. CLINDAMYCIN PHOSPHATE. [Suspect]
     Active Substance: CLINDAMYCIN PHOSPHATE
     Indication: RASH
     Dosage: 1 APPLICATION, UNKNOWN
     Route: 061
     Dates: start: 201812, end: 201812

REACTIONS (6)
  - Application site pruritus [Not Recovered/Not Resolved]
  - Application site erythema [Not Recovered/Not Resolved]
  - Off label use [Recovered/Resolved]
  - Application site pain [Not Recovered/Not Resolved]
  - Pharyngeal swelling [Not Recovered/Not Resolved]
  - Application site folliculitis [Not Recovered/Not Resolved]

NARRATIVE: CASE EVENT DATE: 201812
